FAERS Safety Report 6801856-5 (Version None)
Quarter: 2010Q2

REPORT INFORMATION
  Report Type: 
  Country: None (occurrence: None)
  Receive Date: 20100629
  Receipt Date: 20100618
  Transmission Date: 20101027
  Serious: Yes (Death, Hospitalization, Other)
  Sender: FDA-Public Use
  Company Number: DE-PFIZER INC-2010050238

PATIENT
  Age: 76 Year
  Sex: Male
  Weight: 85 kg

DRUGS (5)
  1. PREDNISONE [Suspect]
     Indication: PROSTATE CANCER
     Dosage: 5 MG, 2X/DAY
     Route: 048
     Dates: start: 20100330
  2. SUNITINIB MALATE [Suspect]
     Indication: PROSTATE CANCER
     Dosage: 37.5 MG, 1X/DAY
     Route: 048
     Dates: start: 20100330
  3. IBUPROFEN [Concomitant]
     Indication: ANALGESIC THERAPY
     Dosage: 600 MG, AS NEEDED
     Route: 048
     Dates: start: 20090311
  4. ZOMETA [Concomitant]
     Indication: METASTASES TO BONE
     Dosage: UNK
     Route: 042
     Dates: start: 20080101
  5. BUSERELIN ACETATE [Concomitant]
     Dosage: UNK
     Route: 058
     Dates: start: 20080101

REACTIONS (4)
  - CARDIAC FAILURE [None]
  - INTESTINAL PERFORATION [None]
  - MENTAL DISORDER DUE TO A GENERAL MEDICAL CONDITION [None]
  - NERVOUS SYSTEM DISORDER [None]
